FAERS Safety Report 13056672 (Version 1)
Quarter: 2016Q4

REPORT INFORMATION
  Report Type: Report from Study
  Country: US (occurrence: US)
  Receive Date: 20161222
  Receipt Date: 20161222
  Transmission Date: 20170207
  Serious: Yes (Hospitalization, Other)
  Sender: FDA-Public Use
  Company Number: US-AMGEN-USACT2016038671

PATIENT
  Sex: Male

DRUGS (4)
  1. PEGFILGRASTIM [Suspect]
     Active Substance: PEGFILGRASTIM
     Indication: PRODUCT USED FOR UNKNOWN INDICATION
     Dosage: UNK
     Route: 065
     Dates: start: 201506
  2. INSULIN [Concomitant]
     Active Substance: INSULIN NOS
     Dosage: UNK
  3. AMITRIPTYLINE [Concomitant]
     Active Substance: AMITRIPTYLINE
     Indication: INSOMNIA
     Dosage: UNK
     Dates: start: 201601
  4. ZOLOFT [Concomitant]
     Active Substance: SERTRALINE HYDROCHLORIDE
     Indication: INSOMNIA
     Dosage: 50 MG, UNK
     Dates: start: 2016

REACTIONS (1)
  - Suicidal ideation [Unknown]

NARRATIVE: CASE EVENT DATE: 20160316
